FAERS Safety Report 6142703-7 (Version None)
Quarter: 2009Q2

REPORT INFORMATION
  Report Type: 
  Country: None (occurrence: None)
  Receive Date: 20090403
  Receipt Date: 20090325
  Transmission Date: 20091009
  Serious: Yes (Death, Hospitalization)
  Sender: FDA-Public Use
  Company Number: BR-BRISTOL-MYERS SQUIBB COMPANY-14411094

PATIENT
  Age: 57 Year
  Sex: Male

DRUGS (3)
  1. ABATACEPT [Suspect]
     Indication: CROHN'S DISEASE
     Dosage: INTERRUPTED 30OCT08
     Route: 042
     Dates: start: 20080925, end: 20081030
  2. PREDNISONE [Concomitant]
     Dates: start: 20070120, end: 20081117
  3. MESALAMINE [Concomitant]
     Dates: start: 20081030

REACTIONS (3)
  - CROHN'S DISEASE [None]
  - INTESTINAL PERFORATION [None]
  - SEPSIS [None]
